FAERS Safety Report 6049441-X (Version None)
Quarter: 2009Q1

REPORT INFORMATION
  Report Type: 
  Country: None (occurrence: None)
  Receive Date: 20090123
  Receipt Date: 20081218
  Transmission Date: 20090719
  Serious: Yes (Hospitalization)
  Sender: FDA-Public Use
  Company Number: GB-MERCK-0806GBR00062

PATIENT
  Age: 43 Year
  Sex: Male

DRUGS (4)
  1. DECADRON [Suspect]
     Route: 065
  2. SULFADIAZINE [Concomitant]
     Route: 065
  3. PYRIMETHAMINE [Concomitant]
     Route: 065
  4. ANTIMICROBIAL (UNSPECIFIED) [Concomitant]
     Route: 065

REACTIONS (1)
  - SCHISTOSOMIASIS [None]
